FAERS Safety Report 20057649 (Version 1)
Quarter: 2021Q4

REPORT INFORMATION
  Report Type: Report from Study
  Country: US (occurrence: US)
  Receive Date: 20211111
  Receipt Date: 20211111
  Transmission Date: 20220303
  Serious: Yes (Death, Other)
  Sender: FDA-Public Use
  Company Number: US-TAKEDA-2021TUS070129

PATIENT
  Sex: Male

DRUGS (1)
  1. LANTHANUM CARBONATE [Suspect]
     Active Substance: LANTHANUM CARBONATE
     Indication: Product used for unknown indication
     Dosage: 500 MILLIGRAM, TID
     Route: 065
     Dates: start: 20210407, end: 20211109

REACTIONS (1)
  - Death [Fatal]
